FAERS Safety Report 6119008-3 (Version None)
Quarter: 2009Q1

REPORT INFORMATION
  Report Type: 
  Country: None (occurrence: None)
  Receive Date: 20090316
  Receipt Date: 20090304
  Transmission Date: 20090719
  Serious: No
  Sender: FDA-Public Use
  Company Number: US-BAYER-200914564NA

PATIENT
  Sex: Female

DRUGS (1)
  1. YAZ [Suspect]
     Route: 048
     Dates: start: 20080301, end: 20090301

REACTIONS (4)
  - DYSPAREUNIA [None]
  - GENITAL HAEMORRHAGE [None]
  - MEDICATION ERROR [None]
  - PREGNANCY ON ORAL CONTRACEPTIVE [None]
